FAERS Safety Report 23647214 (Version 1)
Quarter: 2024Q1

REPORT INFORMATION
  Report Type: Spontaneous
  Country: US (occurrence: US)
  Receive Date: 20240319
  Receipt Date: 20240319
  Transmission Date: 20240410
  Serious: Yes (Other)
  Sender: FDA-Public Use
  Company Number: US-AMERICAN REGENT INC-2024000932

PATIENT
  Age: 20 Year
  Sex: Female

DRUGS (7)
  1. VENOFER [Suspect]
     Active Substance: IRON SUCROSE
     Indication: Iron deficiency anaemia
     Dosage: 500 MILLIGRAM MIXED IN 250 ML OF NORMAL SALINE
     Route: 042
     Dates: start: 20240223, end: 20240223
  2. VENOFER [Suspect]
     Active Substance: IRON SUCROSE
     Dosage: 300 MG: 500 MILLIGRAM MIXED IN 250 ML OF NORMAL SALINE (LOT # 3361 FOR 3 VIALS)
     Route: 042
     Dates: start: 20240311, end: 20240311
  3. VENOFER [Suspect]
     Active Substance: IRON SUCROSE
     Dosage: 200 MG: 500 MILLIGRAM MIXED IN 250 ML OF NORMAL SALINE (LOT # 3265 FOR 2 VIALS)
     Route: 042
     Dates: start: 20240311, end: 20240311
  4. LYSTEDA [Concomitant]
     Active Substance: TRANEXAMIC ACID
     Indication: Product used for unknown indication
     Dosage: 2 TABLETS (1300 MILLIGRAM) 3 TO 4 TIMES A DAY AS NEEDED
     Route: 048
  5. FAMOTIDINE [Concomitant]
     Active Substance: FAMOTIDINE
     Indication: Premedication
     Dosage: 20 MILLIGRAM
     Route: 042
     Dates: start: 20240311, end: 20240311
  6. DEXAMETHASONE [Concomitant]
     Active Substance: DEXAMETHASONE
     Indication: Premedication
     Dosage: 8 MILLIGRAM
     Route: 042
     Dates: start: 20240311, end: 20240311
  7. DIPHENHYDRAMINE [Concomitant]
     Active Substance: DIPHENHYDRAMINE
     Indication: Premedication
     Dosage: 50 MILLIGRAM
     Route: 042
     Dates: start: 20240311, end: 20240311

REACTIONS (7)
  - Throat irritation [Recovered/Resolved]
  - Burning sensation [Recovered/Resolved]
  - Pain in extremity [Recovered/Resolved]
  - Pruritus [Recovered/Resolved]
  - Abdominal pain upper [Recovered/Resolved]
  - Nausea [Recovered/Resolved]
  - Chest discomfort [Recovered/Resolved]

NARRATIVE: CASE EVENT DATE: 20240223
